FAERS Safety Report 9111519 (Version 1)
Quarter: 2013Q1

REPORT INFORMATION
  Report Type: Spontaneous
  Country: US (occurrence: US)
  Receive Date: 20130219
  Receipt Date: 20130219
  Transmission Date: 20140127
  Serious: No
  Sender: FDA-Public Use
  Company Number: US-BRISTOL-MYERS SQUIBB COMPANY-16963563

PATIENT
  Age: 60 Year
  Sex: Female
  Weight: 125 kg

DRUGS (4)
  1. ORENCIA [Suspect]
     Indication: RHEUMATOID ARTHRITIS
     Dosage: DATE OF LAST INFUSION:30AUG2012,27SEP2012,13NOV12?DUE NEXT ON 25OCT2012
     Route: 042
     Dates: start: 20120607
  2. METHOTREXATE [Suspect]
  3. PREDNISONE [Suspect]
     Dosage: TAPERING OFF
  4. ALEVE [Concomitant]

REACTIONS (4)
  - Rheumatoid arthritis [Not Recovered/Not Resolved]
  - Back pain [Unknown]
  - Blister [Unknown]
  - Drug ineffective [Unknown]
